FAERS Safety Report 8439221-X (Version None)
Quarter: 2012Q2

REPORT INFORMATION
  Report Type: 
  Country: None (occurrence: None)
  Receive Date: 20120615
  Receipt Date: 20120608
  Transmission Date: 20120825
  Serious: Yes (Hospitalization, Other)
  Sender: FDA-Public Use
  Company Number: PHHY2012US049497

PATIENT
  Age: 25 Year
  Sex: Male

DRUGS (1)
  1. CYCLOSPORINE [Suspect]
     Indication: IMMUNOSUPPRESSION
     Dosage: UNK UKN, UNK

REACTIONS (15)
  - PYREXIA [None]
  - CYSTITIS HAEMORRHAGIC [None]
  - TOXICITY TO VARIOUS AGENTS [None]
  - ENGRAFTMENT SYNDROME [None]
  - HAEMATURIA [None]
  - RENAL FAILURE [None]
  - RENAL TUBULAR ATROPHY [None]
  - TUBULOINTERSTITIAL NEPHRITIS [None]
  - THROMBOCYTOPENIA [None]
  - COUGH [None]
  - RENAL FAILURE ACUTE [None]
  - FEBRILE NEUTROPENIA [None]
  - HYPERBILIRUBINAEMIA [None]
  - ADENOVIRUS INFECTION [None]
  - RENAL IMPAIRMENT [None]
